FAERS Safety Report 21917520 (Version 4)
Quarter: 2023Q1

REPORT INFORMATION
  Report Type: Spontaneous
  Country: GB (occurrence: GB)
  Receive Date: 20230126
  Receipt Date: 20230209
  Transmission Date: 20230418
  Serious: Yes (Hospitalization, Other)
  Sender: FDA-Public Use
  Company Number: GB-ABBVIE-4283196

PATIENT
  Age: 31 Year
  Sex: Female

DRUGS (5)
  1. ADALIMUMAB [Suspect]
     Active Substance: ADALIMUMAB
     Indication: Crohn^s disease
     Route: 058
     Dates: start: 201312, end: 201409
  2. ADALIMUMAB [Suspect]
     Active Substance: ADALIMUMAB
     Route: 058
     Dates: start: 201511
  3. USTEKINUMAB [Suspect]
     Active Substance: USTEKINUMAB
     Indication: Product used for unknown indication
     Route: 058
     Dates: start: 202204
  4. USTEKINUMAB [Suspect]
     Active Substance: USTEKINUMAB
     Indication: Product used for unknown indication
     Route: 058
     Dates: start: 202112, end: 202201
  5. TACROLIMUS [Concomitant]
     Active Substance: TACROLIMUS
     Indication: Product used for unknown indication

REACTIONS (19)
  - Latent tuberculosis [Unknown]
  - Pyoderma gangrenosum [Unknown]
  - Congestive cardiomyopathy [Unknown]
  - Quality of life decreased [Unknown]
  - Sepsis [Unknown]
  - Therapeutic product effect decreased [Unknown]
  - Proctitis [Unknown]
  - Nosocomial infection [Unknown]
  - Inflammation [Unknown]
  - Pulmonary cavitation [Unknown]
  - Gastrointestinal disorder [Unknown]
  - Staphylococcal bacteraemia [Unknown]
  - Lung opacity [Unknown]
  - Anal fistula [Unknown]
  - Disease recurrence [Unknown]
  - Left ventricular dysfunction [Unknown]
  - General physical health deterioration [Unknown]
  - Superficial vein thrombosis [Unknown]
  - Secretion discharge [Unknown]

NARRATIVE: CASE EVENT DATE: 20180101
